FAERS Safety Report 6383044-2 (Version None)
Quarter: 2009Q3

REPORT INFORMATION
  Report Type: 
  Country: None (occurrence: None)
  Receive Date: 20090930
  Receipt Date: 20090924
  Transmission Date: 20100115
  Serious: Yes (Other)
  Sender: FDA-Public Use
  Company Number: US-AMGEN-US366189

PATIENT
  Age: 55 Year
  Sex: Male
  Weight: 214 kg

DRUGS (5)
  1. NPLATE [Suspect]
     Indication: IDIOPATHIC THROMBOCYTOPENIC PURPURA
     Route: 058
  2. METFORMIN HCL [Concomitant]
     Route: 065
  3. NOVOLOG [Concomitant]
     Route: 065
  4. COLACE [Concomitant]
     Route: 065
  5. LISINOPRIL [Concomitant]
     Route: 065

REACTIONS (1)
  - PLATELET COUNT INCREASED [None]
